FAERS Safety Report 9484847 (Version 1)
Quarter: 2013Q3

REPORT INFORMATION
  Report Type: Spontaneous
  Country: NL (occurrence: NL)
  Receive Date: 20130828
  Receipt Date: 20130828
  Transmission Date: 20140515
  Serious: Yes (Hospitalization, Other)
  Sender: FDA-Public Use
  Company Number: NL-PFIZER INC-2013248723

PATIENT
  Age: 80 Year
  Sex: Female
  Weight: 65 kg

DRUGS (13)
  1. LYRICA [Suspect]
     Indication: PRURITUS
     Dosage: 150 MG, 1X/DAY
     Dates: start: 20130819, end: 20130821
  2. ACETYLSALICYLIC ACID [Concomitant]
     Dosage: 80 MG, 1X/DAY
  3. PREDNISOLON [Concomitant]
     Dosage: 5 MG, 1X/DAY
  4. LEVOTHYROXINE SODIUM [Concomitant]
     Dosage: 50 MG, 1X/DAY
  5. PANTOPRAZOLE SODIUM [Concomitant]
     Dosage: 40 MG, 2X/DAY
  6. CLOPIDOGREL HYDROCHLORIDE [Concomitant]
     Dosage: 75 MG, 1X/DAY
  7. METOPROLOL SUCCINATE [Concomitant]
     Dosage: 50 MG, 1X/DAY
  8. ENALAPRIL [Concomitant]
     Dosage: 10 MG, 1X/DAY
  9. OXYCODONE HYDROCHLORIDE [Concomitant]
     Dosage: 10 MG, 2X/DAY
  10. OXYNORM [Concomitant]
     Dosage: 5 MG, AS NEEDED
  11. CETOMACROGOL 1000 [Concomitant]
  12. ENBREL ^WYETH LEDERLE^ [Concomitant]
     Dosage: 50 MG, WEEKLY
  13. PRAMIPEXOLE [Concomitant]
     Dosage: 0.125 MG, UNK

REACTIONS (3)
  - Off label use [Unknown]
  - Dystonia [Recovered/Resolved]
  - Bradycardia [Recovered/Resolved]
